FAERS Safety Report 9903587 (Version 2)
Quarter: 2015Q2

REPORT INFORMATION
  Report Type: Report from Study
  Country: AR (occurrence: AR)
  Receive Date: 20140217
  Receipt Date: 20150522
  Transmission Date: 20150821
  Serious: Yes (Disabling, Other)
  Sender: FDA-Public Use
  Company Number: AR-ABBVIE-14P-007-1200494-00

PATIENT
  Age: 60 Year
  Sex: Male

DRUGS (1)
  1. HUMIRA [Suspect]
     Active Substance: ADALIMUMAB
     Indication: RHEUMATOID ARTHRITIS
     Route: 058
     Dates: start: 20120301, end: 20131203

REACTIONS (3)
  - Rheumatoid arthritis [Recovered/Resolved]
  - Arterial occlusive disease [Unknown]
  - Leg amputation [Unknown]

NARRATIVE: CASE EVENT DATE: 201312
